FAERS Safety Report 8362524-4 (Version None)
Quarter: 2012Q2

REPORT INFORMATION
  Report Type: 
  Country: None (occurrence: None)
  Receive Date: 20120514
  Receipt Date: 20120430
  Transmission Date: 20120825
  Serious: Yes (Hospitalization)
  Sender: FDA-Public Use
  Company Number: 7129159

PATIENT
  Sex: Female

DRUGS (7)
  1. UVEDOSE (COLECALCIFEROL) (COLECALCIFEROL) [Concomitant]
  2. VALPROATE SODIUM [Suspect]
     Indication: EPILEPSY
     Dosage: 4 DF (4 DF, 1 D) ORAL
     Route: 048
  3. LEVOTHYROXINE SODIUM [Suspect]
     Indication: HYPOTHYROIDISM
     Dosage: 25 MCG (25 MCG, 1 IN 1 D), 50 MCG (50 MCG, 1 IN 1 D), ORAL
     Route: 048
  4. ELEVIT B9 (ELEVIT VITAMINE B9) (VITAMINS, VITAMIN A) [Concomitant]
  5. TEGRETOL [Suspect]
     Indication: EPILEPSY
     Dosage: 2 DF (2 DF, 1 D), ORAL
     Route: 048
  6. MAGNE B6 (DYNAMAG) (MAGNESIUM, PYRIDOXINE) [Concomitant]
  7. CIBLOR (AMOXICILLIN W/CLAVULANATE POTASSIUM) (CLAVULANIC ACID, AMOXICI [Concomitant]

REACTIONS (3)
  - GESTATIONAL HYPERTENSION [None]
  - GESTATIONAL DIABETES [None]
  - MATERNAL EXPOSURE TIMING UNSPECIFIED [None]
